FAERS Safety Report 4984192-1 (Version None)
Quarter: 2006Q2

REPORT INFORMATION
  Report Type: 
  Country: None (occurrence: None)
  Receive Date: 20060427
  Receipt Date: 20060418
  Transmission Date: 20061013
  Serious: Yes (Hospitalization)
  Sender: FDA-Public Use
  Company Number: US-JNJFOC-20060404958

PATIENT
  Sex: Male
  Weight: 113.4 kg

DRUGS (3)
  1. DURAGESIC-100 [Suspect]
     Route: 062
  2. IMITREX [Concomitant]
     Indication: MIGRAINE
     Dosage: 6 MG, UP TO TWO INJECTIONS PER DAY, SUBCUTANEOUS
     Route: 058
  3. PHENERGAN HCL [Concomitant]
     Indication: NAUSEA
     Dosage: 25 MG, 1 EVERY 4 TO 6 HOURS AS NEEDED, ORAL
     Route: 048

REACTIONS (6)
  - EOSINOPHILIA [None]
  - FLANK PAIN [None]
  - PULMONARY EMBOLISM [None]
  - RENAL PAIN [None]
  - TESTICULAR PAIN [None]
  - THROMBOSIS [None]
